FAERS Safety Report 26159029 (Version 1)
Quarter: 2025Q4

REPORT INFORMATION
  Report Type: Other
  Country: EU (occurrence: EU)
  Receive Date: 20251215
  Receipt Date: 20251215
  Transmission Date: 20260117
  Serious: Yes (Hospitalization, Other)
  Sender: ANI
  Company Number: EU-ANIPHARMA-2025-PL-000022

PATIENT
  Age: 39 Year
  Sex: Male

DRUGS (14)
  1. ANASTROZOLE [Suspect]
     Active Substance: ANASTROZOLE
     Indication: Performance enhancing product use
  2. NANDROLONE [Concomitant]
     Active Substance: NANDROLONE
     Indication: Performance enhancing product use
  3. TESTOSTERONE [Concomitant]
     Active Substance: TESTOSTERONE
     Indication: Performance enhancing product use
     Dosage: EXCEEDED 1 GRAM
  4. CABERGOLINE [Concomitant]
     Active Substance: CABERGOLINE
     Indication: Performance enhancing product use
  5. ALPRAZOLAM [Concomitant]
     Active Substance: ALPRAZOLAM
     Indication: Performance enhancing product use
  6. DIAZEPAM [Concomitant]
     Active Substance: DIAZEPAM
     Indication: Performance enhancing product use
  7. SOMATROPIN [Concomitant]
     Active Substance: SOMATROPIN
     Indication: Performance enhancing product use
     Dosage: PERIODICALLY, 4-5 TIMES A WEEK BEFORE EACH TRAINING SESSION
  8. MECASERMIN [Concomitant]
     Active Substance: MECASERMIN
     Indication: Performance enhancing product use
  9. INSULIN NOS [Concomitant]
     Active Substance: INSULIN NOS
     Indication: Product used for unknown indication
  10. TELMISARTAN [Concomitant]
     Active Substance: TELMISARTAN
     Indication: Product used for unknown indication
  11. EZETIMIBE [Concomitant]
     Active Substance: EZETIMIBE
     Indication: Product used for unknown indication
  12. ALPRAZOLAM [Concomitant]
     Active Substance: ALPRAZOLAM
     Indication: Performance enhancing product use
     Dosage: 1-1.5 MG
  13. ALPRAZOLAM [Concomitant]
     Active Substance: ALPRAZOLAM
     Indication: Performance enhancing product use
  14. TESTOSTERONE [Concomitant]
     Active Substance: TESTOSTERONE
     Indication: Performance enhancing product use
     Dosage: THE WEEKLY DOSE OF  TESTOSTERONE PERIODICALLY EXCEEDED 1 G

REACTIONS (16)
  - Self-medication [Unknown]
  - Arteriosclerosis coronary artery [Recovering/Resolving]
  - Postprandial hypoglycaemia [Recovering/Resolving]
  - Chest pain [Unknown]
  - Chest discomfort [Unknown]
  - Irritable bowel syndrome [Unknown]
  - Laboratory test abnormal [Unknown]
  - Hypertension [Unknown]
  - Performance enhancing product use [Unknown]
  - Andropause [Unknown]
  - Peptic ulcer [Unknown]
  - Off label use [Unknown]
  - High density lipoprotein decreased [Recovering/Resolving]
  - Blood testosterone increased [Unknown]
  - Blood growth hormone increased [Unknown]
  - Insulin-like growth factor increased [Unknown]
